FAERS Safety Report 24613459 (Version 1)
Quarter: 2024Q4

REPORT INFORMATION
  Report Type: Spontaneous
  Country: AE (occurrence: AE)
  Receive Date: 20241113
  Receipt Date: 20241113
  Transmission Date: 20250115
  Serious: Yes (Hospitalization)
  Sender: ELI LILLY AND COMPANY
  Company Number: AE-ELI_LILLY_AND_COMPANY-AE202411000978

PATIENT
  Age: 45 Year
  Sex: Female

DRUGS (2)
  1. MOUNJARO [Suspect]
     Active Substance: TIRZEPATIDE
     Indication: Product used for unknown indication
     Dosage: 10 MG, WEEKLY (1/W)
     Route: 065
  2. MOUNJARO [Suspect]
     Active Substance: TIRZEPATIDE
     Indication: Product used for unknown indication
     Dosage: 10 MG, WEEKLY (1/W)
     Route: 065

REACTIONS (7)
  - Body temperature increased [Unknown]
  - Abdominal pain [Unknown]
  - Vomiting [Unknown]
  - Dehydration [Unknown]
  - Insomnia [Unknown]
  - Prescription drug used without a prescription [Unknown]
  - Intentional product use issue [Unknown]
